FAERS Safety Report 8543088-9 (Version None)
Quarter: 2012Q3

REPORT INFORMATION
  Report Type: 
  Country: None (occurrence: None)
  Receive Date: 20120727
  Receipt Date: 20110801
  Transmission Date: 20120928
  Serious: No
  Sender: FDA-Public Use
  Company Number: US-MYLANLABS-2011S1016171

PATIENT
  Age: 79 Year
  Sex: Female

DRUGS (4)
  1. LIPITOR [Suspect]
  2. LEVOTHYROXINE SODIUM [Suspect]
  3. WARFARIN SODIUM [Suspect]
  4. AVAPRO [Suspect]

REACTIONS (2)
  - PAIN IN EXTREMITY [None]
  - MOBILITY DECREASED [None]
